FAERS Safety Report 13127848 (Version 1)
Quarter: 2017Q1

REPORT INFORMATION
  Report Type: Spontaneous
  Country: US (occurrence: US)
  Receive Date: 20170118
  Receipt Date: 20170118
  Transmission Date: 20170428
  Serious: No
  Sender: FDA-Public Use
  Company Number: US-NOVOPROD-522663

PATIENT
  Age: 56 Year
  Sex: Male
  Weight: 108.84 kg

DRUGS (2)
  1. TRESIBA FLEXTOUCH U200 [Suspect]
     Active Substance: INSULIN DEGLUDEC
     Indication: DIABETES MELLITUS
     Dosage: 120 U, QD
     Route: 058
     Dates: start: 201610
  2. TRESIBA FLEXTOUCH U200 [Suspect]
     Active Substance: INSULIN DEGLUDEC
     Dosage: 150 U, QD
     Route: 058
     Dates: start: 20161130

REACTIONS (4)
  - Drug ineffective [Unknown]
  - Product quality issue [Unknown]
  - Injection site reaction [Not Recovered/Not Resolved]
  - Product contamination with body fluid [Unknown]

NARRATIVE: CASE EVENT DATE: 201610
